FAERS Safety Report 16711646 (Version 2)
Quarter: 2019Q3

REPORT INFORMATION
  Report Type: Spontaneous
  Country: JP (occurrence: JP)
  Receive Date: 20190816
  Receipt Date: 20190827
  Transmission Date: 20191004
  Serious: Yes (Hospitalization, Other)
  Sender: FDA-Public Use
  Company Number: JP-JNJFOC-20190819269

PATIENT
  Age: 30 Year
  Sex: Male

DRUGS (1)
  1. CONCERTA [Suspect]
     Active Substance: METHYLPHENIDATE HYDROCHLORIDE
     Indication: NEURODEVELOPMENTAL DISORDER
     Dosage: UNKNOWN
     Route: 048

REACTIONS (2)
  - Cerebellar infarction [Recovering/Resolving]
  - Vertebral artery dissection [Unknown]

NARRATIVE: CASE EVENT DATE: 20190811
